FAERS Safety Report 6831989-9 (Version None)
Quarter: 2010Q3

REPORT INFORMATION
  Report Type: 
  Country: None (occurrence: None)
  Receive Date: 20100712
  Receipt Date: 20070226
  Transmission Date: 20110219
  Serious: No
  Sender: FDA-Public Use
  Company Number: US-PFIZER INC-2007015825

PATIENT
  Sex: Female
  Weight: 63.05 kg

DRUGS (6)
  1. CHANTIX [Suspect]
     Indication: SMOKING CESSATION THERAPY
     Dates: start: 20070219
  2. SYNTHROID [Concomitant]
  3. VALIUM [Concomitant]
  4. ADVIL LIQUI-GELS [Concomitant]
  5. VITAMINS [Concomitant]
  6. THERAPEUTIC RADIOPHARMACEUTICALS [Concomitant]

REACTIONS (1)
  - DRY THROAT [None]
